FAERS Safety Report 7031444-X (Version None)
Quarter: 2010Q4

REPORT INFORMATION
  Report Type: 
  Country: None (occurrence: None)
  Receive Date: 20101006
  Receipt Date: 20100927
  Transmission Date: 20110411
  Serious: Yes (Life-Threatening)
  Sender: FDA-Public Use
  Company Number: JP-AMGEN-KDC438900

PATIENT
  Age: 68 Year
  Sex: Female
  Weight: 58 kg

DRUGS (6)
  1. VECTIBIX [Suspect]
     Indication: COLORECTAL CANCER
     Route: 041
     Dates: start: 20100903, end: 20100903
  2. FOLINIC ACID [Suspect]
  3. OXALIPLATIN [Suspect]
  4. FLUOROURACIL [Suspect]
     Route: 041
  5. ANTIHISTAMINES [Concomitant]
     Indication: PROPHYLAXIS
     Route: 065
  6. CORTICOSTEROIDS [Concomitant]
     Indication: PROPHYLAXIS
     Route: 065

REACTIONS (1)
  - INTERSTITIAL LUNG DISEASE [None]
